FAERS Safety Report 12048111 (Version 2)
Quarter: 2016Q1

REPORT INFORMATION
  Report Type: Spontaneous
  Country: US (occurrence: US)
  Receive Date: 20160209
  Receipt Date: 20160302
  Transmission Date: 20160526
  Serious: No
  Sender: FDA-Public Use
  Company Number: US-ENDO PHARMACEUTICALS INC-2015SCPR014022

PATIENT

DRUGS (13)
  1. VINCRISTINE [Concomitant]
     Active Substance: VINCRISTINE
     Indication: CHEMOTHERAPY
     Dosage: UNK, UNKNOWN
     Route: 065
     Dates: start: 201504
  2. SE-TAN [Concomitant]
     Indication: ANAEMIA
     Dosage: 1 DF, TIW
     Route: 048
  3. SYNTHROID [Concomitant]
     Active Substance: LEVOTHYROXINE SODIUM
     Indication: HYPOTHYROIDISM
     Dosage: 1 DF, OD
     Route: 048
  4. VALIUM [Concomitant]
     Active Substance: DIAZEPAM
     Indication: ADVERSE DRUG REACTION
     Dosage: UNK, PRN
     Route: 048
  5. VOXIL [Concomitant]
     Indication: CHEMOTHERAPY
     Dosage: UNK, UNKNOWN
     Route: 065
     Dates: start: 201504
  6. CHEMOTHERAPY AGENT [Concomitant]
     Indication: CHEMOTHERAPY
     Dosage: UNK, UNKNOWN
     Route: 065
  7. NASCOBAL [Suspect]
     Active Substance: CYANOCOBALAMIN
     Indication: VITAMIN B12 DEFICIENCY
     Dosage: 1 SPR, WEEKLY, IN ONE NOSTRIL
     Route: 045
  8. NASCOBAL [Suspect]
     Active Substance: CYANOCOBALAMIN
     Dosage: 1 SPR, WEEKLY, IN BOTH THE NOSTRILS
     Route: 045
     Dates: start: 201505
  9. ZOLFRAN [Concomitant]
     Indication: ADVERSE DRUG REACTION
     Dosage: UNK, PRN
     Route: 048
  10. OMEPRAZOLE. [Concomitant]
     Active Substance: OMEPRAZOLE
     Indication: GASTROOESOPHAGEAL REFLUX DISEASE
     Dosage: 1 DF, OD
     Route: 048
  11. AMBIEN [Concomitant]
     Active Substance: ZOLPIDEM TARTRATE
     Indication: ADVERSE DRUG REACTION
     Dosage: UNK, PRN
     Route: 048
  12. MIRULAX [Concomitant]
     Indication: ADVERSE DRUG REACTION
     Dosage: UNK, PRN
     Route: 048
  13. IMODIUM [Concomitant]
     Active Substance: LOPERAMIDE HYDROCHLORIDE
     Indication: ADVERSE DRUG REACTION
     Dosage: UNK, UNKNOWN
     Route: 048

REACTIONS (2)
  - Extra dose administered [Unknown]
  - Therapeutic response unexpected [Unknown]
